FAERS Safety Report 8858613 (Version 4)
Quarter: 2012Q4

REPORT INFORMATION
  Report Type: 
  Country: JP (occurrence: JP)
  Receive Date: 20121024
  Receipt Date: 20121120
  Transmission Date: 20130627
  Serious: Yes (Hospitalization, Other)
  Sender: FDA-Public Use
  Company Number: JP-PFIZER INC-2012264184

PATIENT
  Age: 75 Year
  Sex: Female
  Weight: 46 kg

DRUGS (16)
  1. JZOLOFT [Suspect]
     Indication: DEPRESSION
     Dosage: 25 mg, 1x/day
     Route: 048
     Dates: start: 20120806, end: 20120810
  2. JZOLOFT [Suspect]
     Dosage: 50 mg/day
     Route: 048
     Dates: start: 20120811, end: 20120916
  3. JZOLOFT [Suspect]
     Dosage: 100 mg/day (50mg twice daily)
     Route: 048
     Dates: start: 20120917, end: 20121022
  4. BAYASPIRIN [Concomitant]
     Indication: PROPHYLAXIS
     Dosage: 100 mg, 1x/day
     Route: 048
     Dates: start: 2010
  5. PARIET [Concomitant]
     Indication: PROPHYLAXIS OF NSAID GASTRIC ULCERATION
     Dosage: 10 mg, 1x/day
     Route: 048
  6. PREDONINE [Concomitant]
     Indication: RHEUMATOID ARTHRITIS
     Dosage: 5 mg, 1x/day
     Route: 048
     Dates: start: 2005
  7. PREDONINE [Concomitant]
     Indication: AUTOIMMUNE HEMOLYTIC ANEMIA
  8. CRESTOR [Concomitant]
     Indication: HYPERLIPIDAEMIA
     Dosage: 2.5 mg, 1x/day
     Route: 048
  9. RHEUMATREX [Concomitant]
     Indication: RHEUMATOID ARTHRITIS
     Dosage: 6 mg, weekly
     Route: 048
  10. FOLIAMIN [Concomitant]
     Indication: PROPHYLAXIS
     Dosage: 5 mg, weekly
     Route: 048
  11. BAKTAR [Concomitant]
     Indication: PROPHYLAXIS
     Dosage: 1 g, 1x/day
     Route: 048
  12. ASPARA-CA [Concomitant]
     Indication: OSTEOPOROSIS
     Dosage: 200 mg, 3x/day
     Route: 048
  13. BENET [Concomitant]
     Indication: OSTEOPOROSIS
     Dosage: 17.5 mg, weekly
     Route: 048
  14. ENBREL [Concomitant]
     Indication: RHEUMATOID ARTHRITIS
     Dosage: 25 mg, every other week
     Route: 058
  15. PURSENNID [Concomitant]
     Indication: CONSTIPATION
     Dosage: 12 mg, 1x/day
     Route: 048
     Dates: end: 20121012
  16. MAGMITT [Concomitant]
     Indication: CONSTIPATION
     Dosage: 330 mg, 4x/day
     Route: 048
     Dates: end: 20121012

REACTIONS (1)
  - Serotonin syndrome [Recovered/Resolved]
